FAERS Safety Report 11374862 (Version 2)
Quarter: 2017Q1

REPORT INFORMATION
  Report Type: Report from Study
  Country: US (occurrence: US)
  Receive Date: 20150813
  Receipt Date: 20170223
  Transmission Date: 20170428
  Serious: Yes (Disabling, Other)
  Sender: FDA-Public Use
  Company Number: PHEH2015US015028

PATIENT
  Sex: Female
  Weight: 53.52 kg

DRUGS (4)
  1. GILENYA [Suspect]
     Active Substance: FINGOLIMOD HYDROCHLORIDE
     Dosage: 0.5 MG, QOD
     Route: 048
  2. MAGNESIUM ASCORBATE [Concomitant]
     Active Substance: MAGNESIUM ASCORBATE
     Indication: PRODUCT USED FOR UNKNOWN INDICATION
     Route: 065
  3. GILENYA [Suspect]
     Active Substance: FINGOLIMOD HYDROCHLORIDE
     Indication: MULTIPLE SCLEROSIS RELAPSE
     Dosage: 0.5 MG, QD
     Route: 048
     Dates: start: 2012
  4. VITAMIN D [Concomitant]
     Active Substance: CHOLECALCIFEROL
     Indication: VITAMIN D DEFICIENCY
     Route: 065

REACTIONS (14)
  - Gait disturbance [Unknown]
  - Muscular weakness [Unknown]
  - Urinary incontinence [Unknown]
  - Fatigue [Unknown]
  - Pollakiuria [Unknown]
  - Balance disorder [Unknown]
  - Central nervous system lesion [Unknown]
  - Optic atrophy [Unknown]
  - Musculoskeletal stiffness [Unknown]
  - Intentional underdose [Unknown]
  - Muscle spasticity [Unknown]
  - Coordination abnormal [Unknown]
  - Vitamin B12 deficiency [Unknown]
  - Sensory disturbance [Unknown]

NARRATIVE: CASE EVENT DATE: 2012
